FAERS Safety Report 6250120-4 (Version None)
Quarter: 2009Q2

REPORT INFORMATION
  Report Type: 
  Country: None (occurrence: None)
  Receive Date: 20090626
  Receipt Date: 20090619
  Transmission Date: 20091009
  Serious: Yes (Death, Other)
  Sender: FDA-Public Use
  Company Number: 2009US002510

PATIENT

DRUGS (1)
  1. PROGRAF [Suspect]
     Indication: INTESTINAL TRANSPLANT

REACTIONS (2)
  - INTESTINE TRANSPLANT REJECTION [None]
  - PANCREATITIS [None]
